FAERS Safety Report 4953888-X (Version None)
Quarter: 2006Q1

REPORT INFORMATION
  Report Type: 
  Country: None (occurrence: None)
  Receive Date: 20060323
  Receipt Date: 20060323
  Transmission Date: 20060701
  Serious: Yes (Life-Threatening, Hospitalization)
  Sender: FDA-Public Use
  Company Number: None

PATIENT
  Age: 44 Year
  Sex: Female

DRUGS (1)
  1. TEMOZOLOMIDE CAPSULE [Suspect]
     Indication: GLIOBLASTOMA
     Dosage: 75 MG/M2 DAILY PO
     Route: 048
     Dates: start: 20050501, end: 20051101

REACTIONS (1)
  - BRONCHOPULMONARY ASPERGILLOSIS [None]
